FAERS Safety Report 20831816 (Version 1)
Quarter: 2022Q2

REPORT INFORMATION
  Report Type: Spontaneous
  Country: US (occurrence: US)
  Receive Date: 20220516
  Receipt Date: 20220516
  Transmission Date: 20220721
  Serious: Yes (Hospitalization, Other)
  Sender: FDA-Public Use
  Company Number: US-BRISTOL-MYERS SQUIBB COMPANY-2022-034237

PATIENT
  Age: 55 Year
  Sex: Male

DRUGS (1)
  1. POMALYST [Suspect]
     Active Substance: POMALIDOMIDE
     Indication: Plasma cell myeloma
     Dosage: DOSE : POMALYST ORAL CAPS 4MG ORALL 1;     FREQ : ^DAILY 21 DAYS,OR A 28 DAY CYCL^
     Route: 048
     Dates: start: 20200608

REACTIONS (1)
  - Pneumonia [Unknown]
